FAERS Safety Report 4282878-8 (Version None)
Quarter: 2004Q1

REPORT INFORMATION
  Report Type: 
  Country: None (occurrence: None)
  Receive Date: 20040130
  Receipt Date: 20030828
  Transmission Date: 20041129
  Serious: No
  Sender: FDA-Public Use
  Company Number: US-BRISTOL-MYERS SQUIBB COMPANY-12368742

PATIENT
  Age: 47 Year
  Sex: Female
  Weight: 66 kg

DRUGS (3)
  1. SERZONE [Suspect]
     Indication: DEPRESSION
     Route: 048
     Dates: end: 20030710
  2. IBUPROFEN [Concomitant]
  3. CYTOMEL [Concomitant]
     Dosage: ^FOR OVER 1 YEAR^

REACTIONS (1)
  - HEPATIC ENZYME INCREASED [None]
